FAERS Safety Report 6363763 (Version 13)
Quarter: 2013Q3

REPORT INFORMATION
  Report Type: Spontaneous
  Country: US (occurrence: US)
  Receive Date: 20070723
  Receipt Date: 20130801
  Transmission Date: 20140515
  Serious: Yes (Death, Other)
  Sender: FDA-Public Use
  Company Number: PHEH2007US09955

PATIENT
  Age: 56 Year
  Sex: Female
  Weight: 92.97 kg

DRUGS (21)
  1. ZOMETA [Suspect]
     Indication: BREAST CANCER
     Dosage: 4 MG,
  2. ZOFRAN [Concomitant]
  3. DECADRON                                /CAN/ [Concomitant]
  4. BENADRYL /OLD FORM/ [Concomitant]
  5. ATIVAN [Concomitant]
  6. CARBOPLATIN [Concomitant]
  7. FEMARA [Concomitant]
  8. ZOCOR [Concomitant]
  9. ALLEGRA [Concomitant]
  10. RHINOCORT [Concomitant]
  11. CENTRUM [Concomitant]
     Dosage: 1 DF, QD
  12. CALCIUM [Concomitant]
     Dosage: 1000 MG, QD
  13. PREMARIN [Concomitant]
     Dosage: 0.625 MG, QD
  14. LOVENOX [Concomitant]
  15. COUMADIN [Concomitant]
     Dosage: 5 MG, UNK
     Route: 048
  16. LIPITOR                                 /NET/ [Concomitant]
     Route: 048
  17. ALDACTONE [Concomitant]
     Dosage: 50 MG, QD
     Route: 048
  18. PROTONIX [Concomitant]
  19. FLAGYL [Concomitant]
     Dosage: 500 MG, TID
     Route: 048
  20. SIMETHICONE [Concomitant]
     Dosage: 160 MG, UNK
     Route: 048
  21. DURAGESIC [Concomitant]
     Dosage: 25 UG/HR, UNK

REACTIONS (83)
  - Death [Fatal]
  - Osteonecrosis of jaw [Unknown]
  - Pain [Unknown]
  - Bone disorder [Unknown]
  - Infection [Unknown]
  - Deformity [Unknown]
  - Bone erosion [Unknown]
  - Emotional distress [Unknown]
  - Anxiety [Unknown]
  - Hypophagia [Unknown]
  - Discomfort [Unknown]
  - Life expectancy shortened [Unknown]
  - Loose tooth [Unknown]
  - Periodontitis [Unknown]
  - Exposed bone in jaw [Unknown]
  - Oral pain [Unknown]
  - Primary sequestrum [Unknown]
  - Anhedonia [Unknown]
  - Metastases to central nervous system [Unknown]
  - Confusional state [Unknown]
  - Vasogenic cerebral oedema [Unknown]
  - Appendicitis [Unknown]
  - Measles [Unknown]
  - Lymphadenopathy [Unknown]
  - Dyskinesia [Unknown]
  - Dysponesis [Unknown]
  - Autonomic nervous system imbalance [Unknown]
  - Bone lesion [Unknown]
  - Spinal osteoarthritis [Unknown]
  - Pleural effusion [Unknown]
  - Diverticulum intestinal [Unknown]
  - Metastases to lung [Unknown]
  - Atelectasis [Unknown]
  - Lung infiltration [Unknown]
  - Metastases to liver [Not Recovered/Not Resolved]
  - Splenomegaly [Unknown]
  - Ascites [Unknown]
  - Abdominal pain [Unknown]
  - Gallbladder disorder [Unknown]
  - Metastases to bone [Unknown]
  - Pathological fracture [Unknown]
  - Rib fracture [Unknown]
  - Joint effusion [Unknown]
  - Deep vein thrombosis [Unknown]
  - Deafness [Unknown]
  - Device malfunction [Unknown]
  - Mitral valve incompetence [Unknown]
  - Tricuspid valve incompetence [Unknown]
  - Osteoporosis [Unknown]
  - Coagulopathy [Unknown]
  - Hypertension [Unknown]
  - Oral disorder [Unknown]
  - Pyrexia [Unknown]
  - Rhinorrhoea [Unknown]
  - Epistaxis [Unknown]
  - Upper-airway cough syndrome [Unknown]
  - Oropharyngeal pain [Unknown]
  - Dysphagia [Unknown]
  - Dysphonia [Unknown]
  - Sinus headache [Unknown]
  - Vision blurred [Unknown]
  - Blood cholesterol increased [Unknown]
  - Contusion [Unknown]
  - Ear pain [Unknown]
  - Rhinitis allergic [Unknown]
  - Traumatic haematoma [Unknown]
  - Urinary tract infection [Unknown]
  - Sinusitis [Unknown]
  - Dizziness [Unknown]
  - Vomiting [Unknown]
  - Fatigue [Unknown]
  - Neck pain [Unknown]
  - Paronychia [Unknown]
  - Anaemia [Unknown]
  - Local swelling [Unknown]
  - Arthralgia [Not Recovered/Not Resolved]
  - Back pain [Not Recovered/Not Resolved]
  - Gait disturbance [Unknown]
  - Pain in jaw [Unknown]
  - Gastric cancer [Unknown]
  - Second primary malignancy [Unknown]
  - Poor venous access [Unknown]
  - Asthenia [Unknown]
